FAERS Safety Report 11489264 (Version 1)
Quarter: 2015Q3

REPORT INFORMATION
  Report Type: Report from Study
  Country: CA (occurrence: CA)
  Receive Date: 20150909
  Receipt Date: 20150909
  Transmission Date: 20151125
  Serious: Yes (Other)
  Sender: FDA-Public Use
  Company Number: PHHY2014CA164548

PATIENT
  Age: 35 Year
  Sex: Female

DRUGS (1)
  1. GILENYA [Suspect]
     Active Substance: FINGOLIMOD HYDROCHLORIDE
     Indication: PRODUCT USED FOR UNKNOWN INDICATION
     Route: 048

REACTIONS (9)
  - Red blood cell count decreased [Unknown]
  - Haemoglobin decreased [Unknown]
  - Musculoskeletal chest pain [Unknown]
  - Central nervous system lesion [Unknown]
  - Menorrhagia [Unknown]
  - Sleep disorder [Unknown]
  - Dysmenorrhoea [Unknown]
  - Platelet count increased [Unknown]
  - Hyperhidrosis [Unknown]

NARRATIVE: CASE EVENT DATE: 20150807
